FAERS Safety Report 23842558 (Version 2)
Quarter: 2024Q2

REPORT INFORMATION
  Report Type: Spontaneous
  Country: TW (occurrence: TW)
  Receive Date: 20240510
  Receipt Date: 20240523
  Transmission Date: 20240716
  Serious: Yes (Other)
  Sender: FDA-Public Use
  Company Number: TW-002147023-NVSC2023TW148034

PATIENT
  Age: 41 Year
  Sex: Male

DRUGS (5)
  1. LUTATHERA [Suspect]
     Active Substance: LUTETIUM OXODOTREOTIDE LU-177
     Indication: Neuroendocrine tumour
     Dosage: UNK
     Route: 065
     Dates: start: 202301
  2. FLUOROURACIL [Concomitant]
     Active Substance: FLUOROURACIL
     Indication: Product used for unknown indication
     Dosage: UNK
     Route: 065
     Dates: start: 202302
  3. IRINOTECAN [Concomitant]
     Active Substance: IRINOTECAN
     Indication: Product used for unknown indication
     Dosage: UNK
     Route: 065
     Dates: start: 202302
  4. OXALIPLATIN [Concomitant]
     Active Substance: OXALIPLATIN
     Indication: Product used for unknown indication
     Dosage: UNK
     Route: 065
     Dates: start: 202302
  5. LEUCOVORIN CALCIUM [Concomitant]
     Active Substance: LEUCOVORIN CALCIUM
     Indication: Product used for unknown indication
     Dosage: UNK
     Route: 065
     Dates: start: 202302

REACTIONS (4)
  - Neuroendocrine tumour [Unknown]
  - Malignant neoplasm progression [Unknown]
  - Jaundice [Unknown]
  - Off label use [Unknown]

NARRATIVE: CASE EVENT DATE: 20230101
